FAERS Safety Report 8850106 (Version 1)
Quarter: 2012Q4

REPORT INFORMATION
  Report Type: 
  Country: US (occurrence: US)
  Receive Date: 20121019
  Receipt Date: 20121019
  Transmission Date: 20130627
  Serious: Yes (Hospitalization, Disabling, Other)
  Sender: FDA-Public Use
  Company Number: US-009507513-1108USA01804

PATIENT

DRUGS (3)
  1. FOSAMAX [Suspect]
     Indication: OSTEOPOROSIS PROPHYLAXIS
     Dosage: 10 mg, qd
     Route: 048
     Dates: start: 19970428, end: 19971222
  2. BONIVA [Suspect]
     Indication: OSTEOPOROSIS
     Dosage: 150 mg, qd
     Route: 048
     Dates: start: 20060727, end: 20090728
  3. ACTONEL [Suspect]
     Indication: OSTEOPOROSIS PROPHYLAXIS
     Dosage: 35 mg, QW
     Route: 048
     Dates: start: 200605, end: 200607

REACTIONS (59)
  - Lung neoplasm malignant [Unknown]
  - Arthropathy [Unknown]
  - Breast cancer metastatic [Unknown]
  - Pulmonary embolism [Unknown]
  - Cholecystitis [Unknown]
  - Metastatic neoplasm [Unknown]
  - Pancreatitis [Unknown]
  - Arthropathy [Unknown]
  - Bile duct stone [Unknown]
  - Osteonecrosis of jaw [Not Recovered/Not Resolved]
  - Osteonecrosis of jaw [Unknown]
  - Tooth disorder [Unknown]
  - Oral infection [Not Recovered/Not Resolved]
  - Pulmonary mass [Unknown]
  - Impaired healing [Not Recovered/Not Resolved]
  - Arthropathy [Unknown]
  - Abscess oral [Not Recovered/Not Resolved]
  - Dental caries [Not Recovered/Not Resolved]
  - Gingival disorder [Not Recovered/Not Resolved]
  - Overdose [Unknown]
  - Osteoporosis [Unknown]
  - Osteomyelitis [Not Recovered/Not Resolved]
  - Tooth infection [Unknown]
  - Impaired healing [Unknown]
  - Chronic sinusitis [Not Recovered/Not Resolved]
  - Cataract [Unknown]
  - Dermatitis [Unknown]
  - Hypothyroidism [Not Recovered/Not Resolved]
  - Osteopenia [Unknown]
  - Essential hypertension [Unknown]
  - Weight decreased [Unknown]
  - Nasopharyngitis [Unknown]
  - Fatigue [Unknown]
  - Lung hyperinflation [Unknown]
  - Aortic arteriosclerosis [Unknown]
  - Upper respiratory tract infection [Unknown]
  - Synovial cyst [Unknown]
  - Tooth disorder [Unknown]
  - Oroantral fistula [Not Recovered/Not Resolved]
  - Periodontitis [Unknown]
  - Purulent discharge [Unknown]
  - Cholecystitis chronic [Unknown]
  - Insomnia [Recovering/Resolving]
  - Cystitis interstitial [Unknown]
  - Jaw disorder [Not Recovered/Not Resolved]
  - Hypoaesthesia [Unknown]
  - Fistula discharge [Unknown]
  - Blood urine present [Unknown]
  - Drug intolerance [Unknown]
  - Arthritis [Unknown]
  - Periodontal operation [Unknown]
  - Deep vein thrombosis [Unknown]
  - Gastrooesophageal reflux disease [Unknown]
  - Dysgeusia [Unknown]
  - Joint swelling [Unknown]
  - Vomiting [Unknown]
  - Vertigo [Unknown]
  - Nausea [Unknown]
  - Musculoskeletal pain [Unknown]
